FAERS Safety Report 4346568-5 (Version None)
Quarter: 2004Q2

REPORT INFORMATION
  Report Type: 
  Country: None (occurrence: None)
  Receive Date: 20040426
  Receipt Date: 20040225
  Transmission Date: 20050107
  Serious: Yes (Other)
  Sender: FDA-Public Use
  Company Number: US-BRISTOL-MYERS SQUIBB COMPANY-12516613

PATIENT
  Age: 50 Year
  Sex: Female

DRUGS (9)
  1. PARAPLATIN [Suspect]
     Indication: LUNG NEOPLASM MALIGNANT
     Dosage: AUC 6
     Dates: start: 20040216, end: 20040216
  2. TAXOL [Suspect]
     Indication: LUNG NEOPLASM MALIGNANT
     Dates: start: 20040216, end: 20040216
  3. BENADRYL [Concomitant]
     Indication: PREMEDICATION
     Route: 042
     Dates: start: 20040216, end: 20040216
  4. PEPCID [Concomitant]
     Indication: PREMEDICATION
     Route: 042
     Dates: start: 20040216, end: 20040216
  5. DECADRON [Concomitant]
     Indication: PREMEDICATION
     Route: 042
     Dates: start: 20040216, end: 20040216
  6. KYTRIL [Concomitant]
     Indication: PREMEDICATION
     Route: 048
     Dates: start: 20040216, end: 20040216
  7. ENDAL-HD [Concomitant]
  8. TEMAZEPAM [Concomitant]
  9. ZANTAC [Concomitant]

REACTIONS (5)
  - DYSPNOEA [None]
  - FLUSHING [None]
  - RESTLESSNESS [None]
  - VOMITING [None]
  - WHEEZING [None]
